FAERS Safety Report 9405212 (Version 2)
Quarter: 2013Q3

REPORT INFORMATION
  Report Type: Spontaneous
  Country: US (occurrence: US)
  Receive Date: 20130717
  Receipt Date: 20130724
  Transmission Date: 20140515
  Serious: Yes (Hospitalization, Other)
  Sender: FDA-Public Use
  Company Number: US-BAXTER-2013BAX027227

PATIENT
  Age: 65 Year
  Sex: Female

DRUGS (3)
  1. DIANEAL LOW CALCIUM [Suspect]
     Indication: PERITONEAL DIALYSIS
     Route: 033
  2. INSULIN [Suspect]
     Indication: PRODUCT USED FOR UNKNOWN INDICATION
     Route: 033
  3. INSULIN [Suspect]
     Route: 058

REACTIONS (4)
  - Blood glucose decreased [Recovering/Resolving]
  - Pleural effusion [Recovering/Resolving]
  - Nasopharyngitis [Recovering/Resolving]
  - Incorrect dose administered [Recovering/Resolving]
